FAERS Safety Report 5062333-8 (Version None)
Quarter: 2006Q3

REPORT INFORMATION
  Report Type: 
  Country: None (occurrence: None)
  Receive Date: 20060703
  Receipt Date: 20051214
  Transmission Date: 20061208
  Serious: No
  Sender: FDA-Public Use
  Company Number: 2005S1011907

PATIENT
  Age: 32 Year
  Sex: Male

DRUGS (9)
  1. CLOZAPINE [Suspect]
     Dosage: SEE IMAGE
     Route: 048
     Dates: start: 20050201
  2. CLOZAPINE [Suspect]
     Dosage: SEE IMAGE
     Route: 048
     Dates: start: 20050201
  3. ZITHROMAX [Suspect]
     Dosage: SEE IMAGE
     Route: 048
  4. ZITHROMAX [Suspect]
     Dosage: SEE IMAGE
     Route: 048
  5. ACETYLSALICYLIC ACID SRT [Concomitant]
  6. DOCUSATE SODIUM [Concomitant]
  7. QUETIAPINE FUMARATE [Concomitant]
  8. SENNA FRUIT [Concomitant]
  9. VALPROIC ACID [Concomitant]

REACTIONS (1)
  - GRANULOCYTOPENIA [None]
